FAERS Safety Report 4273933-7 (Version None)
Quarter: 2004Q1

REPORT INFORMATION
  Report Type: 
  Country: None (occurrence: None)
  Receive Date: 20040115
  Receipt Date: 20031229
  Transmission Date: 20041129
  Serious: Yes (Other)
  Sender: FDA-Public Use
  Company Number: USA031255443

PATIENT
  Age: 73 Year
  Sex: Female
  Weight: 69 kg

DRUGS (8)
  1. HUMALOG [Suspect]
     Indication: BLOOD GLUCOSE
     Dates: start: 19960101
  2. HUMULIN N [Suspect]
     Indication: BLOOD GLUCOSE
     Dates: start: 19870101, end: 19960101
  3. HUMULIN R [Suspect]
     Indication: BLOOD GLUCOSE
     Dates: start: 19870101, end: 19960101
  4. LANTUS [Concomitant]
  5. DIGITEX (DIGOXIN) [Concomitant]
  6. LEVOTHYROID (LEVOTHYROXINE SODIUM) [Concomitant]
  7. LIPITOR [Concomitant]
  8. METOPROLOL [Concomitant]

REACTIONS (6)
  - ATRIAL FIBRILLATION [None]
  - BLOOD CHOLESTEROL INCREASED [None]
  - CONVULSION [None]
  - DIABETES MELLITUS INADEQUATE CONTROL [None]
  - MACULAR DEGENERATION [None]
  - MEDICAL DEVICE COMPLICATION [None]
